FAERS Safety Report 25032006 (Version 1)
Quarter: 2025Q1

REPORT INFORMATION
  Report Type: Other
  Country: GR (occurrence: GR)
  Receive Date: 20250303
  Receipt Date: 20250303
  Transmission Date: 20250408
  Serious: Yes (Other)
  Sender: EMD SERONO INC
  Company Number: GR-Merck Healthcare KGaA-2025009011

PATIENT
  Age: 11 Year
  Sex: Male
  Weight: 25 kg

DRUGS (1)
  1. SOMATROPIN [Suspect]
     Active Substance: SOMATROPIN
     Indication: Small for dates baby

REACTIONS (2)
  - Atrioventricular block complete [Recovered/Resolved]
  - Off label use [Unknown]
